FAERS Safety Report 8907036 (Version 1)
Quarter: 2012Q4

REPORT INFORMATION
  Report Type: 
  Country: TR (occurrence: TR)
  Receive Date: 20121114
  Receipt Date: 20121114
  Transmission Date: 20130627
  Serious: Yes (Other)
  Sender: FDA-Public Use
  Company Number: PHHY2012TR104669

PATIENT
  Age: 59 Year
  Sex: Male

DRUGS (3)
  1. HEPARIN [Suspect]
     Indication: SURGERY
     Dosage: 1000 IU/h, UNK
  2. HEPARIN [Suspect]
     Dosage: 300 IU/h, UNK
  3. HEPARIN [Suspect]
     Dosage: 5000 IU, UNK

REACTIONS (3)
  - Antithrombin III deficiency [Recovered/Resolved]
  - Drug resistance [Recovered/Resolved]
  - Drug ineffective [Unknown]
